FAERS Safety Report 21583226 (Version 1)
Quarter: 2022Q4

REPORT INFORMATION
  Report Type: Spontaneous
  Country: CN (occurrence: None)
  Receive Date: 20221111
  Receipt Date: 20221111
  Transmission Date: 20230113
  Serious: Yes (Hospitalization)
  Sender: FDA-Public Use
  Company Number: 2022A366543

PATIENT
  Age: 18628 Day
  Sex: Male

DRUGS (8)
  1. DAPAGLIFLOZIN [Suspect]
     Active Substance: DAPAGLIFLOZIN
     Indication: Hyperglycaemia
     Route: 048
     Dates: start: 20220808, end: 20220814
  2. CEFOXITIN SODIUM [Suspect]
     Active Substance: CEFOXITIN SODIUM
     Indication: Pneumonia
     Route: 041
     Dates: start: 20220805, end: 20220816
  3. MOXIFLOXACIN HYDROCHLORIDE [Suspect]
     Active Substance: MOXIFLOXACIN HYDROCHLORIDE
     Indication: Pneumonia
     Route: 041
     Dates: start: 20220805, end: 20220816
  4. ACARBOSE [Concomitant]
     Active Substance: ACARBOSE
     Route: 048
  5. LORATADINE [Concomitant]
     Active Substance: LORATADINE
     Route: 048
  6. CALAMINE LOTION [Concomitant]
     Active Substance: CALAMINE LOTION
     Route: 048
  7. FLUCONAZOLE [Concomitant]
     Active Substance: FLUCONAZOLE
     Route: 048
  8. FLUCONAZOLE [Concomitant]
     Active Substance: FLUCONAZOLE
     Route: 048

REACTIONS (5)
  - Superinfection [Recovering/Resolving]
  - Rash [Recovering/Resolving]
  - Intertrigo [Unknown]
  - Tinea cruris [Unknown]
  - Urinary tract infection [Unknown]

NARRATIVE: CASE EVENT DATE: 20220813
